FAERS Safety Report 8445149-1 (Version None)
Quarter: 2012Q2

REPORT INFORMATION
  Report Type: 
  Country: None (occurrence: None)
  Receive Date: 20120618
  Receipt Date: 20120607
  Transmission Date: 20120825
  Serious: Yes (Hospitalization)
  Sender: FDA-Public Use
  Company Number: KR-ROCHE-1076872

PATIENT
  Sex: Male

DRUGS (2)
  1. AVASTIN [Suspect]
     Indication: METASTATIC RENAL CELL CARCINOMA
     Route: 058
     Dates: start: 20090921, end: 20100531
  2. ROFERON-A [Suspect]
     Indication: METASTATIC RENAL CELL CARCINOMA
     Dates: start: 20090921, end: 20100531

REACTIONS (1)
  - HAEMOPTYSIS [None]
